FAERS Safety Report 8296325-2 (Version None)
Quarter: 2012Q2

REPORT INFORMATION
  Report Type: 
  Country: None (occurrence: None)
  Receive Date: 20120418
  Receipt Date: 20120410
  Transmission Date: 20120825
  Serious: Yes (Other)
  Sender: FDA-Public Use
  Company Number: US-BAYER-2012-035036

PATIENT
  Age: 68 Year
  Sex: Female
  Weight: 68 kg

DRUGS (12)
  1. MILK OF MAGNESIA TAB [Suspect]
     Indication: CONSTIPATION
     Dosage: UNK
     Dates: start: 20120409, end: 20120410
  2. MULTI-VITAMIN [Concomitant]
  3. COMPLEX B [Concomitant]
  4. ASCORBIC ACID [Concomitant]
  5. NEURONTIN [Concomitant]
  6. COLACE [Concomitant]
  7. VITAMIN D [Concomitant]
  8. ASPIRIN [Concomitant]
  9. VICODIN [Concomitant]
  10. VITAMIN E [Concomitant]
  11. ENALAPRIL MALEATE [Concomitant]
  12. FISH OIL [Concomitant]

REACTIONS (4)
  - CHANGE OF BOWEL HABIT [None]
  - DIARRHOEA [None]
  - PROCTALGIA [None]
  - ANAL HAEMORRHAGE [None]
